FAERS Safety Report 8394889-1 (Version None)
Quarter: 2012Q2

REPORT INFORMATION
  Report Type: 
  Country: None (occurrence: None)
  Receive Date: 20120523
  Receipt Date: 20110314
  Transmission Date: 20120825
  Serious: Yes (Other)
  Sender: FDA-Public Use
  Company Number: 163-21880-11031767

PATIENT
  Age: 61 Year
  Sex: Female
  Weight: 45.57 kg

DRUGS (1)
  1. REVLIMID [Suspect]
     Indication: MYELODYSPLASTIC SYNDROME
     Dosage: 5 MG, 1 IN 1 D, PO
     Route: 048
     Dates: start: 20110201

REACTIONS (3)
  - DIARRHOEA [None]
  - MUSCLE SPASMS [None]
  - FATIGUE [None]
